FAERS Safety Report 20839935 (Version 1)
Quarter: 2022Q2

REPORT INFORMATION
  Report Type: Spontaneous
  Country: US (occurrence: US)
  Receive Date: 20220517
  Receipt Date: 20220517
  Transmission Date: 20220721
  Serious: Yes (Other)
  Sender: FDA-Public Use
  Company Number: US-BRACCO-2022US01767

PATIENT
  Age: 64 Year
  Sex: Female

DRUGS (12)
  1. LUMASON [Suspect]
     Active Substance: SULFUR HEXAFLUORIDE
     Indication: Echocardiogram
     Dosage: 2 ML, SINGLE
     Route: 042
     Dates: start: 20220509, end: 20220509
  2. LUMASON [Suspect]
     Active Substance: SULFUR HEXAFLUORIDE
     Indication: Echocardiogram
     Dosage: 2 ML, SINGLE
     Route: 042
     Dates: start: 20220509, end: 20220509
  3. LUMASON [Suspect]
     Active Substance: SULFUR HEXAFLUORIDE
     Indication: Echocardiogram
     Dosage: 2 ML, SINGLE
     Route: 042
     Dates: start: 20220509, end: 20220509
  4. LIPITOR [Concomitant]
     Active Substance: ATORVASTATIN CALCIUM
  5. KLONOPIN [Concomitant]
     Active Substance: CLONAZEPAM
  6. BENTYL [Concomitant]
     Active Substance: DICYCLOMINE HYDROCHLORIDE
  7. VIT D [VITAMIN D NOS] [Concomitant]
  8. MOMETASONE FUROATE [Concomitant]
     Active Substance: MOMETASONE FUROATE
  9. LINZESS [Concomitant]
     Active Substance: LINACLOTIDE
  10. PRILOSEC [Concomitant]
     Active Substance: OMEPRAZOLE MAGNESIUM
  11. GLYCOLAX [Concomitant]
     Active Substance: POLYETHYLENE GLYCOL 3350
  12. IBUPROFEN [Concomitant]
     Active Substance: IBUPROFEN
     Dosage: UNK, AS NECESSARY

REACTIONS (11)
  - Hypersensitivity [Recovered/Resolved]
  - Syncope [Recovered/Resolved]
  - Heart rate decreased [Recovered/Resolved]
  - Pulse absent [Recovered/Resolved]
  - Nausea [Not Recovered/Not Resolved]
  - Chest pain [Recovered/Resolved]
  - Feeling hot [Recovered/Resolved]
  - Dizziness [Not Recovered/Not Resolved]
  - Tremor [Not Recovered/Not Resolved]
  - Somnolence [Not Recovered/Not Resolved]
  - Fatigue [Not Recovered/Not Resolved]

NARRATIVE: CASE EVENT DATE: 20220509
